FAERS Safety Report 6871894-5 (Version None)
Quarter: 2010Q3

REPORT INFORMATION
  Report Type: 
  Country: None (occurrence: None)
  Receive Date: 20100723
  Receipt Date: 20100715
  Transmission Date: 20110219
  Serious: Yes (Other)
  Sender: FDA-Public Use
  Company Number: CA-JNJFOC-20100705731

PATIENT
  Sex: Female
  Weight: 52.16 kg

DRUGS (1)
  1. ORTHO EVRA [Suspect]
     Indication: CONTRACEPTION
     Route: 062
     Dates: start: 20100601, end: 20100601

REACTIONS (5)
  - CONSTIPATION [None]
  - DIARRHOEA [None]
  - MUSCLE SPASMS [None]
  - PANCREATIC ENZYMES INCREASED [None]
  - THERAPY CESSATION [None]
